FAERS Safety Report 24987413 (Version 1)
Quarter: 2025Q1

REPORT INFORMATION
  Report Type: Spontaneous
  Country: US (occurrence: US)
  Receive Date: 20250219
  Receipt Date: 20250219
  Transmission Date: 20250408
  Serious: No
  Sender: KINDEVA DRUG DELIVERY L.P.
  Company Number: US-Kindeva Drug Delivery L.P.-2171397

PATIENT
  Age: 83 Year
  Sex: Male

DRUGS (1)
  1. ALBUTEROL SULFATE [Suspect]
     Active Substance: ALBUTEROL SULFATE
     Indication: Nasal congestion

REACTIONS (4)
  - Pruritus [Unknown]
  - Product dose omission issue [Unknown]
  - Product quality issue [Unknown]
  - Hypersensitivity [Unknown]
